FAERS Safety Report 17342226 (Version 1)
Quarter: 2020Q1

REPORT INFORMATION
  Report Type: Spontaneous
  Country: US (occurrence: US)
  Receive Date: 20200129
  Receipt Date: 20200129
  Transmission Date: 20200409
  Serious: Yes (Hospitalization)
  Sender: FDA-Public Use
  Company Number: US-JNJFOC-20200133772

PATIENT
  Age: 68 Year
  Sex: Female
  Weight: 58.51 kg

DRUGS (14)
  1. TUSSIN DM [Concomitant]
     Active Substance: DEXTROMETHORPHAN HYDROBROMIDE\GUAIFENESIN
     Indication: COUGH
  2. LEVOTHYROXINE. [Concomitant]
     Active Substance: LEVOTHYROXINE
     Indication: THYROID DISORDER
     Dosage: 88 MCG ONE TAB DAILY
     Dates: start: 1994
  3. FLUTICASONE. [Concomitant]
     Active Substance: FLUTICASONE
     Indication: NASAL CONGESTION
     Dosage: 0.05 MG CONTROLLED SPRAY, ONCE A DAY AT BED TIME, ONE SPRAY BOTH NOSTRILS
     Dates: start: 2010
  4. LEVAQUIN [Suspect]
     Active Substance: LEVOFLOXACIN
     Indication: PNEUMONIA
     Route: 065
  5. LATANOPROST. [Concomitant]
     Active Substance: LATANOPROST
     Indication: GLAUCOMA
     Dosage: 0.005% ONE DROP BOTH EYES IN EVENING
     Dates: start: 1994
  6. ATORVASTATIN [Concomitant]
     Active Substance: ATORVASTATIN
     Indication: BLOOD CHOLESTEROL INCREASED
     Dosage: 80 MG ONCE A BEDTIME
     Dates: start: 1994
  7. SERTRALINE [Concomitant]
     Active Substance: SERTRALINE HYDROCHLORIDE
     Indication: ANXIETY
     Dosage: 50 MG ONCE AT BED TIME
     Dates: start: 201911
  8. FLUTICASONE. [Concomitant]
     Active Substance: FLUTICASONE
     Indication: ECZEMA
     Dosage: 0.05% CREAM, ONE APPLICATION TWICE A DAY
     Dates: start: 2010
  9. VITAMIN D3 [Concomitant]
     Active Substance: CHOLECALCIFEROL
     Indication: NUTRITIONAL SUPPLEMENTATION
     Dosage: 2,000 I.U, ONCE A DAY IN MORNING
  10. AZITHROMYCIN ANHYDROUS. [Concomitant]
     Active Substance: AZITHROMYCIN ANHYDROUS
     Route: 048
  11. CEFUROXIME. [Concomitant]
     Active Substance: CEFUROXIME
  12. LEVOBUNOLOL [Concomitant]
     Active Substance: LEVOBUNOLOL
     Indication: GLAUCOMA
     Dosage: 0.5%, TWICE A DAY, 1 DROP EACH EYE
     Dates: start: 1994
  13. ASPRIN [Concomitant]
     Active Substance: ASPIRIN
     Indication: ANTICOAGULANT THERAPY
     Dosage: 325 MG ONE TAB AT BEDTIME
     Dates: start: 2007
  14. ZESTORETIC [Concomitant]
     Active Substance: HYDROCHLOROTHIAZIDE\LISINOPRIL
     Indication: BLOOD PRESSURE MEASUREMENT
     Dosage: 20 MG/25 MG ONE TAB ONCE A DAY
     Dates: start: 1994

REACTIONS (2)
  - Respiratory distress [Unknown]
  - Hypotension [Unknown]
